FAERS Safety Report 25050742 (Version 1)
Quarter: 2025Q1

REPORT INFORMATION
  Report Type: Report from Study
  Country: US (occurrence: US)
  Receive Date: 20250307
  Receipt Date: 20250307
  Transmission Date: 20250408
  Serious: Yes (Life-Threatening, Hospitalization, Other)
  Sender: ALEXION PHARMACEUTICALS
  Company Number: US-AstraZeneca-CH-00819976A

PATIENT

DRUGS (1)
  1. BENRALIZUMAB [Suspect]
     Active Substance: BENRALIZUMAB
     Route: 065

REACTIONS (5)
  - Pneumonia [Unknown]
  - Pneumothorax [Unknown]
  - Myocardial infarction [Unknown]
  - Coma [Unknown]
  - Illness [Unknown]
